FAERS Safety Report 14799607 (Version 9)
Quarter: 2022Q2

REPORT INFORMATION
  Report Type: Report from Study
  Country: BE (occurrence: BE)
  Receive Date: 20180424
  Receipt Date: 20220627
  Transmission Date: 20220720
  Serious: Yes (Other)
  Sender: FDA-Public Use
  Company Number: BE-INCYTE CORPORATION-2017IN011391

PATIENT
  Age: 55 Year
  Sex: Male

DRUGS (2)
  1. PONATINIB [Suspect]
     Active Substance: PONATINIB
     Indication: Chronic myeloid leukaemia
     Dosage: 45 MILLIGRAM
     Route: 048
     Dates: start: 20160224, end: 20170905
  2. PONATINIB [Suspect]
     Active Substance: PONATINIB
     Dosage: UNK
     Route: 048
     Dates: start: 20170919

REACTIONS (8)
  - Cholestasis [Recovered/Resolved]
  - Respiratory tract infection [Recovered/Resolved]
  - Hypothyroidism [Not Recovered/Not Resolved]
  - Prostatitis [Recovered/Resolved]
  - Generalised oedema [Recovered/Resolved]
  - Ear infection [Recovered/Resolved]
  - Dyspnoea [Recovered/Resolved]
  - Diarrhoea [Recovered/Resolved]

NARRATIVE: CASE EVENT DATE: 20160301
